FAERS Safety Report 20475921 (Version 1)
Quarter: 2022Q1

REPORT INFORMATION
  Report Type: Spontaneous
  Country: US (occurrence: None)
  Receive Date: 20220215
  Receipt Date: 20220215
  Transmission Date: 20220423
  Serious: Yes (Life-Threatening, Other)
  Sender: FDA-Public Use
  Company Number: None

PATIENT
  Age: 57 Year
  Sex: Male
  Weight: 50 kg

DRUGS (14)
  1. EVUSHELD [Suspect]
     Active Substance: CILGAVIMAB\TIXAGEVIMAB
     Indication: COVID-19 prophylaxis
     Dosage: FREQUENCY : ONCE;?
     Route: 030
     Dates: start: 20220112, end: 20220112
  2. ERTAPENEM [Concomitant]
     Active Substance: ERTAPENEM
  3. TAMSULOSIN [Concomitant]
     Active Substance: TAMSULOSIN
  4. TACROLIMUS [Concomitant]
     Active Substance: TACROLIMUS
  5. PREDNISONE [Concomitant]
     Active Substance: PREDNISONE
  6. PROMETHAZINE [Concomitant]
     Active Substance: PROMETHAZINE HYDROCHLORIDE
  7. ONDANSETRON [Concomitant]
     Active Substance: ONDANSETRON
  8. prochloperazine [Concomitant]
  9. METOPROLOL [Concomitant]
     Active Substance: METOPROLOL
  10. levetiractem [Concomitant]
  11. LETERMOVIR [Concomitant]
     Active Substance: LETERMOVIR
  12. isoavuconazonium [Concomitant]
  13. ATOVAQUONE [Concomitant]
     Active Substance: ATOVAQUONE
  14. ACYCLOVIR [Concomitant]
     Active Substance: ACYCLOVIR

REACTIONS (7)
  - Generalised tonic-clonic seizure [None]
  - Unresponsive to stimuli [None]
  - Hypotonia [None]
  - Sluggishness [None]
  - Stenotrophomonas infection [None]
  - Pneumonia [None]
  - Staphylococcal infection [None]

NARRATIVE: CASE EVENT DATE: 20220112
